FAERS Safety Report 6856705-6 (Version None)
Quarter: 2010Q2

REPORT INFORMATION
  Report Type: 
  Country: None (occurrence: None)
  Receive Date: 20100630
  Receipt Date: 20100428
  Transmission Date: 20101027
  Serious: No
  Sender: FDA-Public Use
  Company Number: 1000013456

PATIENT
  Sex: Female

DRUGS (2)
  1. BYSTOLIC [Suspect]
     Dosage: 5 MG (5 MG, 1 IN 1 D), ORAL; 2.5 MG (2.5 MG, 1  IN 1 D), ORAL
     Route: 048
     Dates: start: 20100401, end: 20100401
  2. BYSTOLIC [Suspect]
     Dosage: 5 MG (5 MG, 1 IN 1 D), ORAL; 2.5 MG (2.5 MG, 1  IN 1 D), ORAL
     Route: 048
     Dates: start: 20100401

REACTIONS (2)
  - CHEST PAIN [None]
  - FATIGUE [None]
